FAERS Safety Report 9519979 (Version 1)
Quarter: 2013Q3

REPORT INFORMATION
  Report Type: Spontaneous
  Country: IT (occurrence: IT)
  Receive Date: 20130912
  Receipt Date: 20130912
  Transmission Date: 20140515
  Serious: Yes (Hospitalization)
  Sender: FDA-Public Use
  Company Number: IT-BRISTOL-MYERS SQUIBB COMPANY-19233980

PATIENT
  Age: 77 Year
  Sex: Female

DRUGS (4)
  1. ONGLYZA TABS [Suspect]
     Dates: start: 201102
  2. JANUVIA [Suspect]
  3. INSULIN [Concomitant]
  4. LOSARTAN [Concomitant]

REACTIONS (1)
  - Pancreatic carcinoma [Unknown]
